FAERS Safety Report 11335399 (Version 5)
Quarter: 2015Q4

REPORT INFORMATION
  Report Type: Report from Study
  Country: US (occurrence: US)
  Receive Date: 20150804
  Receipt Date: 20151113
  Transmission Date: 20160304
  Serious: Yes (Other)
  Sender: FDA-Public Use
  Company Number: US-AMGEN-USASP2015078109

PATIENT
  Age: 44 Year
  Sex: Male

DRUGS (2)
  1. METHOTREXATE [Suspect]
     Active Substance: METHOTREXATE
     Indication: PRODUCT USED FOR UNKNOWN INDICATION
     Dosage: UNK
     Route: 065
  2. ENBREL [Suspect]
     Active Substance: ETANERCEPT
     Indication: RHEUMATOID ARTHRITIS
     Dosage: UNK UNK, QWK
     Route: 065

REACTIONS (12)
  - Rheumatoid arthritis [Unknown]
  - Insomnia [Unknown]
  - Fluid retention [Unknown]
  - Epicondylitis [Unknown]
  - Localised oedema [Unknown]
  - Adverse drug reaction [Unknown]
  - Confusional state [Unknown]
  - Nausea [Unknown]
  - Arthralgia [Unknown]
  - Oedema peripheral [Unknown]
  - Dyspnoea [Unknown]
  - Fatigue [Unknown]

NARRATIVE: CASE EVENT DATE: 20150803
